FAERS Safety Report 17917112 (Version 2)
Quarter: 2022Q1

REPORT INFORMATION
  Report Type: Spontaneous
  Country: AR (occurrence: AR)
  Receive Date: 20200619
  Receipt Date: 20220317
  Transmission Date: 20220423
  Serious: Yes (Other)
  Sender: FDA-Public Use
  Company Number: AR-PFIZER INC-2020237845

PATIENT
  Age: 57 Year
  Sex: Male

DRUGS (1)
  1. XELJANZ [Suspect]
     Active Substance: TOFACITINIB CITRATE
     Indication: Rheumatoid arthritis
     Dosage: 5 MG, 2X/DAY
     Dates: start: 20191001

REACTIONS (10)
  - Diabetes mellitus [Unknown]
  - Embolism [Unknown]
  - Pulmonary embolism [Unknown]
  - Cardiomegaly [Not Recovered/Not Resolved]
  - Nodule [Unknown]
  - Arthropathy [Unknown]
  - Hypertension [Unknown]
  - Arthropathy [Not Recovered/Not Resolved]
  - Thyroid disorder [Not Recovered/Not Resolved]
  - Finger deformity [Not Recovered/Not Resolved]

NARRATIVE: CASE EVENT DATE: 20190101
